FAERS Safety Report 9263568 (Version 1)
Quarter: 2013Q2

REPORT INFORMATION
  Report Type: Spontaneous
  Country: US (occurrence: None)
  Receive Date: 20130429
  Receipt Date: 20130429
  Transmission Date: 20140414
  Serious: Yes (Other)
  Sender: FDA-Public Use
  Company Number: None

PATIENT
  Age: 29 Year
  Sex: Female

DRUGS (2)
  1. ACTHAR [Suspect]
     Indication: DERMATOMYOSITIS
     Dosage: 1 ML BIW SUBCUTANEOUS
     Route: 058
     Dates: start: 20130404, end: 20130425
  2. PREDNISONE [Concomitant]

REACTIONS (3)
  - Tremor [None]
  - Palpitations [None]
  - Feeling jittery [None]
